FAERS Safety Report 9036645 (Version 1)
Quarter: 2012Q4

REPORT INFORMATION
  Report Type: Spontaneous
  Country: US (occurrence: None)
  Receive Date: 20121205
  Receipt Date: 20121205
  Transmission Date: 20130627
  Serious: Yes (Other)
  Sender: FDA-Public Use
  Company Number: GAM-233-12-US

PATIENT
  Sex: Female

DRUGS (1)
  1. IMMUNE GLOBULIN HUMAN [Suspect]

REACTIONS (2)
  - Herpes zoster [None]
  - Staphylococcal infection [None]
